FAERS Safety Report 14972021 (Version 3)
Quarter: 2018Q2

REPORT INFORMATION
  Report Type: Report from Study
  Country: IL (occurrence: IL)
  Receive Date: 20180605
  Receipt Date: 20180614
  Transmission Date: 20180711
  Serious: Yes (Other)
  Sender: FDA-Public Use
  Company Number: IL-ROCHE-2132567

PATIENT
  Age: 62 Year
  Sex: Female
  Weight: 94 kg

DRUGS (7)
  1. VEMURAFENIB. [Suspect]
     Active Substance: VEMURAFENIB
     Dosage: THERAPY RESUMED ON AN UNSPECIFIED DATE AT REDUCED DOSE
     Route: 048
  2. ZOFRAN [Concomitant]
     Active Substance: ONDANSETRON HYDROCHLORIDE
     Indication: NAUSEA
     Route: 048
     Dates: start: 20170822
  3. BETA CAROTENE [Concomitant]
     Indication: PRURITUS
     Route: 065
     Dates: start: 20171107
  4. ATEZOLIZUMAB. [Suspect]
     Active Substance: ATEZOLIZUMAB
     Indication: MALIGNANT MELANOMA
     Dosage: DATE OF MOST RECENT DOSE OF ATEZOLIZUMAB PRIOR TO AE ONSET: 14/MAY/2018?DOSE: 1200MG/20ML.
     Route: 042
     Dates: start: 20170528
  5. IRBESARTAN. [Concomitant]
     Active Substance: IRBESARTAN
     Indication: HYPERTENSION
     Route: 048
  6. VEMURAFENIB. [Suspect]
     Active Substance: VEMURAFENIB
     Indication: MALIGNANT MELANOMA
     Dosage: MOST RECENT DOSE OF DOSE BLINDED VEMURAFENIB PRIOR TO THE ONSET OF ASYMPTOMATIC PANCREATITIS: 27/MAY
     Route: 048
     Dates: start: 20170430
  7. COBIMETINIB. [Suspect]
     Active Substance: COBIMETINIB
     Indication: MALIGNANT MELANOMA
     Dosage: MOST RECENT DOSE PRIOR TO THE ONSET OF ASYMPTOMATIC PANCREATITIS: 19/MAY/2018 (40 MG)
     Route: 048
     Dates: start: 20170430

REACTIONS (1)
  - Pancreatitis [Recovered/Resolved]

NARRATIVE: CASE EVENT DATE: 20180527
